FAERS Safety Report 4867908-4 (Version None)
Quarter: 2005Q4

REPORT INFORMATION
  Report Type: 
  Country: None (occurrence: None)
  Receive Date: 20051223
  Receipt Date: 20051208
  Transmission Date: 20060501
  Serious: Yes (Death, Other)
  Sender: FDA-Public Use
  Company Number: GB200511001467

PATIENT
  Age: 57 Year
  Sex: Male

DRUGS (15)
  1. XIGRIS [Suspect]
     Indication: SEPSIS
     Dosage: 200 UG/ML, INTRAVENOUS
     Route: 042
     Dates: start: 20051115, end: 20051119
  2. ACYCLOVIR [Concomitant]
  3. TAZOCIN (PIPERACILLIN SODIUM, TAZOBACTAM [Concomitant]
  4. OMEPRAZOLE [Concomitant]
  5. CLARITHROMYCIN [Concomitant]
  6. FLUCONAZOLE [Concomitant]
  7. HYDROCORTISONE [Concomitant]
  8. PABRINEX (ASCORBIC ACID, NICOTINAMIDE, PYRIDOXINE HYDROCHLORIDE, RIBOF [Concomitant]
  9. ACETYLCYSTEINE [Concomitant]
  10. NORADRENALINE (NOREPINEPHRINE) [Concomitant]
  11. EPINEPHRINE [Concomitant]
  12. PROPOFOL [Concomitant]
  13. ALFENTANIL [Concomitant]
  14. ACTRAPID HUMAN (INSULIN HUMAN) [Concomitant]
  15. VASOPRESSIN AND ANALOGUES [Concomitant]

REACTIONS (4)
  - ECCHYMOSIS [None]
  - HAEMORRHAGE [None]
  - NEUTROPENIA [None]
  - THROMBOCYTOPENIA [None]
